FAERS Safety Report 9136697 (Version 1)
Quarter: 2013Q1

REPORT INFORMATION
  Report Type: Spontaneous
  Country: US (occurrence: US)
  Receive Date: 20130304
  Receipt Date: 20130304
  Transmission Date: 20140127
  Serious: No
  Sender: FDA-Public Use
  Company Number: US-ABBOTT-12P-163-0955052-00

PATIENT
  Sex: Male

DRUGS (2)
  1. ANDROGEL [Suspect]
     Indication: PRODUCT USED FOR UNKNOWN INDICATION
     Dates: start: 20120702
  2. UNSPECIFIED INGREDIENT [Interacting]
     Indication: PRODUCT USED FOR UNKNOWN INDICATION

REACTIONS (5)
  - Somnolence [Unknown]
  - Blood pressure increased [Unknown]
  - Headache [Unknown]
  - Heart rate increased [Unknown]
  - Drug interaction [Unknown]
